FAERS Safety Report 8257234-8 (Version None)
Quarter: 2012Q2

REPORT INFORMATION
  Report Type: 
  Country: None (occurrence: None)
  Receive Date: 20120403
  Receipt Date: 20120328
  Transmission Date: 20120825
  Serious: Yes (Death, Hospitalization)
  Sender: FDA-Public Use
  Company Number: KE-ELI_LILLY_AND_COMPANY-KE201203009104

PATIENT
  Age: 60 Year
  Sex: Male

DRUGS (1)
  1. HUMALOG MIX 50/50 [Suspect]
     Indication: TYPE 2 DIABETES MELLITUS
     Dosage: UNK
     Dates: start: 20110301

REACTIONS (3)
  - INCORRECT DOSE ADMINISTERED [None]
  - HYPERKALAEMIA [None]
  - HYPOGLYCAEMIA [None]
